FAERS Safety Report 16684122 (Version 3)
Quarter: 2019Q3

REPORT INFORMATION
  Report Type: Spontaneous
  Country: US (occurrence: US)
  Receive Date: 20190808
  Receipt Date: 20190910
  Transmission Date: 20191004
  Serious: No
  Sender: FDA-Public Use
  Company Number: US-JNJFOC-20190803124

PATIENT
  Age: 51 Year
  Sex: Male
  Weight: 90.8 kg

DRUGS (3)
  1. DURAGESIC [Suspect]
     Active Substance: FENTANYL
     Indication: PAIN
     Route: 062
     Dates: start: 2011
  2. DURAGESIC [Suspect]
     Active Substance: FENTANYL
     Route: 062
     Dates: start: 2014, end: 2015
  3. DURAGESIC [Suspect]
     Active Substance: FENTANYL
     Route: 062
     Dates: start: 201812

REACTIONS (2)
  - Product adhesion issue [Unknown]
  - Pain [Unknown]

NARRATIVE: CASE EVENT DATE: 201905
